FAERS Safety Report 15057418 (Version 7)
Quarter: 2019Q1

REPORT INFORMATION
  Report Type: Spontaneous
  Country: FR (occurrence: FR)
  Receive Date: 20180625
  Receipt Date: 20190315
  Transmission Date: 20190417
  Serious: Yes (Hospitalization, Other)
  Sender: FDA-Public Use
  Company Number: FR-ACCORD-068582

PATIENT
  Age: 85 Year
  Sex: Female
  Weight: 68 kg

DRUGS (9)
  1. NISISCO [Concomitant]
     Active Substance: HYDROCHLOROTHIAZIDE\VALSARTAN
     Indication: HYPERTENSION
  2. ASPIRINE PROTECT [Concomitant]
     Active Substance: ASPIRIN
     Indication: POSTOPERATIVE CARE
  3. PARACETAMOL/TRAMADOL [Suspect]
     Active Substance: ACETAMINOPHEN\TRAMADOL
     Indication: ARTHRALGIA
     Dosage: UNK
     Route: 048
  4. SPIRONOLACTONE. [Suspect]
     Active Substance: SPIRONOLACTONE
     Indication: HYPERTENSION
     Dosage: IN THE MORNING
     Route: 048
     Dates: start: 2016
  5. PERINDOPRIL ARGININE BIOGARAN [Interacting]
     Active Substance: PERINDOPRIL ARGININE
     Indication: HYPERTENSION
     Dosage: UNK, EVERY NIGHT AROUND 07:00 PM
     Route: 048
     Dates: start: 2016
  6. PERINDOPRIL ARGININE BIOGARAN [Suspect]
     Active Substance: PERINDOPRIL ARGININE
     Indication: HYPERTENSION
     Dosage: STRENGTH 5 MG?5 MG, QD IN THE EVENING
     Route: 048
     Dates: start: 2016
  7. ALDACTAZINE [Concomitant]
     Active Substance: ALTHIAZIDE\SPIRONOLACTONE
     Indication: HYPERTENSION
     Route: 048
     Dates: start: 2016
  8. RILMENIDINE/RILMENIDINE PHOSPHATE [Suspect]
     Active Substance: RILMENIDINE
     Indication: HYPERTENSION
     Route: 048
     Dates: start: 2017
  9. NEBIVOLOL. [Suspect]
     Active Substance: NEBIVOLOL
     Indication: HYPERTENSION
     Route: 048

REACTIONS (22)
  - Labelled drug-drug interaction medication error [Unknown]
  - Urine output increased [Not Recovered/Not Resolved]
  - Myalgia [Not Recovered/Not Resolved]
  - Vasculitis [Unknown]
  - Drug ineffective [Unknown]
  - Diarrhoea [Unknown]
  - Product use issue [Unknown]
  - Nausea [Unknown]
  - Abdominal pain [Unknown]
  - Arthralgia [Unknown]
  - Palpitations [Unknown]
  - Cough [Not Recovered/Not Resolved]
  - Myalgia [Unknown]
  - Wrong schedule [Unknown]
  - Acute kidney injury [Unknown]
  - Asthma [Unknown]
  - Medication error [Unknown]
  - Fatigue [Unknown]
  - Respiratory disorder [Unknown]
  - Dyspnoea [Unknown]
  - Tachycardia [Unknown]
  - Feeling hot [Unknown]

NARRATIVE: CASE EVENT DATE: 2016
